FAERS Safety Report 7022503-6 (Version None)
Quarter: 2010Q3

REPORT INFORMATION
  Report Type: 
  Country: None (occurrence: None)
  Receive Date: 20100930
  Receipt Date: 20100923
  Transmission Date: 20110219
  Serious: Yes (Hospitalization)
  Sender: FDA-Public Use
  Company Number: DE-ROCHE-729816

PATIENT
  Sex: Female

DRUGS (7)
  1. ROACTEMRA [Suspect]
     Indication: RHEUMATOID ARTHRITIS
     Route: 042
     Dates: start: 20100910
  2. METHOTREXATE [Concomitant]
     Indication: RHEUMATOID ARTHRITIS
     Route: 058
  3. DECORTIN [Concomitant]
  4. FOLSAN [Concomitant]
  5. IBUPROFEN [Concomitant]
  6. NOVAMINSULFON [Concomitant]
  7. PANTOPRAZOLE SODIUM [Concomitant]

REACTIONS (3)
  - AGITATION [None]
  - CHILLS [None]
  - NAUSEA [None]
